FAERS Safety Report 22362820 (Version 1)
Quarter: 2023Q2

REPORT INFORMATION
  Report Type: Spontaneous
  Country: IN (occurrence: IN)
  Receive Date: 20230524
  Receipt Date: 20230524
  Transmission Date: 20230721
  Serious: Yes (Death, Hospitalization)
  Sender: FDA-Public Use
  Company Number: IN-STRIDES ARCOLAB LIMITED-2023SP007610

PATIENT
  Age: 67 Year
  Sex: Male

DRUGS (1)
  1. METHOTREXATE [Suspect]
     Active Substance: METHOTREXATE
     Indication: Psoriasis
     Dosage: UNK
     Route: 065

REACTIONS (10)
  - Skin ulcer [Fatal]
  - Erythema [Fatal]
  - Pain of skin [Fatal]
  - Blood glucose abnormal [Fatal]
  - Liver function test abnormal [Fatal]
  - Renal function test abnormal [Fatal]
  - Product prescribing issue [Fatal]
  - Pancytopenia [Fatal]
  - Sepsis [Fatal]
  - Toxicity to various agents [Fatal]
